FAERS Safety Report 24641601 (Version 2)
Quarter: 2024Q4

REPORT INFORMATION
  Report Type: Spontaneous
  Country: US (occurrence: US)
  Receive Date: 20241120
  Receipt Date: 20241127
  Transmission Date: 20250114
  Serious: No
  Sender: NOVARTIS
  Company Number: US-002147023-NVSC2024US163677

PATIENT
  Sex: Male
  Weight: 66 kg

DRUGS (1)
  1. FABHALTA [Suspect]
     Active Substance: IPTACOPAN HYDROCHLORIDE
     Indication: Paroxysmal nocturnal haemoglobinuria
     Dosage: 200 MG, BID
     Route: 048
     Dates: start: 20240425

REACTIONS (6)
  - Dry mouth [Unknown]
  - Nasal congestion [Unknown]
  - Ageusia [Unknown]
  - Pain [Unknown]
  - Abdominal pain upper [Unknown]
  - Constipation [Unknown]
